FAERS Safety Report 7044343-4 (Version None)
Quarter: 2010Q4

REPORT INFORMATION
  Report Type: 
  Country: None (occurrence: None)
  Receive Date: 20101014
  Receipt Date: 20101006
  Transmission Date: 20110411
  Serious: Yes (Other)
  Sender: FDA-Public Use
  Company Number: DE-BAXTER-2010BH025143

PATIENT
  Age: 15 Year
  Sex: Male
  Weight: 82 kg

DRUGS (5)
  1. ADVATE [Suspect]
     Indication: PROPHYLAXIS
     Route: 042
     Dates: start: 20101005, end: 20101005
  2. ADVATE [Suspect]
     Indication: HAEMOPHILIA
     Route: 042
     Dates: start: 20101005, end: 20101005
  3. METAMIZOLE SODIUM MONOHYDRATE [Concomitant]
     Route: 042
     Dates: start: 20101005
  4. PIRITRAMIDE [Concomitant]
     Route: 042
     Dates: start: 20101005
  5. SUFENTANIL CITRATE [Concomitant]
     Route: 042
     Dates: start: 20101005

REACTIONS (4)
  - APATHY [None]
  - DIPLOPIA [None]
  - HEADACHE [None]
  - VOMITING [None]
